FAERS Safety Report 14074231 (Version 1)
Quarter: 2017Q4

REPORT INFORMATION
  Report Type: Report from Study
  Country: JP (occurrence: JP)
  Receive Date: 20171010
  Receipt Date: 20171010
  Transmission Date: 20180321
  Serious: Yes (Other)
  Sender: FDA-Public Use
  Company Number: JP-BAYER-2017-186911

PATIENT
  Age: 81 Year
  Sex: Female
  Weight: 45 kg

DRUGS (11)
  1. PLETAAL [Suspect]
     Active Substance: CILOSTAZOL
     Indication: CEREBRAL INFARCTION
     Dosage: 100 MG, BID
     Route: 048
     Dates: start: 20170106, end: 20170712
  2. PLETAAL [Suspect]
     Active Substance: CILOSTAZOL
     Indication: ISCHAEMIC STROKE
  3. NU-LOTAN [Suspect]
     Active Substance: LOSARTAN POTASSIUM
  4. NICORANDIL [Suspect]
     Active Substance: NICORANDIL
  5. ARTIST [Suspect]
     Active Substance: CARVEDILOL
  6. ATORVASTATIN [Suspect]
     Active Substance: ATORVASTATIN
  7. STATIN [Concomitant]
     Active Substance: UNSPECIFIED INGREDIENT
  8. ASPIRIN. [Suspect]
     Active Substance: ASPIRIN
     Indication: CEREBRAL INFARCTION
     Dosage: 100 MG, QD
     Route: 048
     Dates: start: 20170106, end: 20170712
  9. TENAXIL [Suspect]
     Active Substance: INDAPAMIDE
  10. ASPIRIN. [Suspect]
     Active Substance: ASPIRIN
     Indication: ISCHAEMIC STROKE
  11. EDIROL [Suspect]
     Active Substance: ELDECALCITOL

REACTIONS (2)
  - Renal impairment [None]
  - Oedema peripheral [None]

NARRATIVE: CASE EVENT DATE: 201702
